FAERS Safety Report 23990807 (Version 1)
Quarter: 2024Q2

REPORT INFORMATION
  Report Type: Other
  Country: US (occurrence: US)
  Receive Date: 20240619
  Receipt Date: 20240619
  Transmission Date: 20240716
  Serious: Yes (Other)
  Sender: FDA-Public Use
  Company Number: US-UROVANT SCIENCES GMBH-202406-URV-000872

PATIENT
  Sex: Female

DRUGS (1)
  1. GEMTESA [Suspect]
     Active Substance: VIBEGRON
     Indication: Product used for unknown indication
     Dosage: 1 UNK, QD
     Route: 065
     Dates: start: 20240517, end: 20240607

REACTIONS (7)
  - Hypoxia [Unknown]
  - Hot flush [Unknown]
  - Peripheral swelling [Unknown]
  - Muscle spasms [Unknown]
  - Pollakiuria [Unknown]
  - Abdominal pain upper [Unknown]
  - Cough [Unknown]
